FAERS Safety Report 12611361 (Version 2)
Quarter: 2017Q2

REPORT INFORMATION
  Report Type: Report from Study
  Country: US (occurrence: US)
  Receive Date: 20160801
  Receipt Date: 20170525
  Transmission Date: 20170830
  Serious: No
  Sender: FDA-Public Use
  Company Number: US-THERATECHNOLOGIES, INC.-TH-2016-00084

PATIENT
  Sex: Female
  Weight: 97.51 kg

DRUGS (9)
  1. EGRIFTA [Suspect]
     Active Substance: TESAMORELIN
     Dosage: UNK UNK, UNKNOWN
     Route: 058
  2. EGRIFTA [Suspect]
     Active Substance: TESAMORELIN
     Dosage: UNK UNK, UNKNOWN
     Route: 058
  3. VALTREX [Concomitant]
     Active Substance: VALACYCLOVIR HYDROCHLORIDE
  4. LYRICA [Concomitant]
     Active Substance: PREGABALIN
  5. ATRIPLA [Concomitant]
     Active Substance: EFAVIRENZ\EMTRICITABINE\TENOFOVIR DISOPROXIL FUMARATE
  6. OXYBUTYNIN [Concomitant]
     Active Substance: OXYBUTYNIN
  7. CELEXA [Concomitant]
     Active Substance: CITALOPRAM HYDROBROMIDE
  8. ESTEROL [Concomitant]
  9. HYDRCODONE [Concomitant]

REACTIONS (2)
  - Injection site rash [Recovered/Resolved]
  - Blood glucose increased [Recovered/Resolved]
